FAERS Safety Report 6329882-3 (Version None)
Quarter: 2009Q3

REPORT INFORMATION
  Report Type: 
  Country: None (occurrence: None)
  Receive Date: 20090826
  Receipt Date: 20090817
  Transmission Date: 20100115
  Serious: Yes (Life-Threatening, Hospitalization, Other)
  Sender: FDA-Public Use
  Company Number: DE-ABBOTT-09P-062-0588221-00

PATIENT
  Sex: Female

DRUGS (14)
  1. HUMIRA [Suspect]
     Indication: RHEUMATOID ARTHRITIS
     Route: 058
     Dates: start: 20080801, end: 20081201
  2. LEFLUNOMIDE [Concomitant]
     Indication: RHEUMATOID ARTHRITIS
  3. PANTOPRAZOLE SODIUM [Concomitant]
     Indication: PROPHYLAXIS AGAINST GASTROINTESTINAL ULCER
     Route: 048
  4. PANTOPRAZOLE SODIUM [Concomitant]
     Indication: MUCOUS MEMBRANE DISORDER
  5. PREDNISOLONE [Concomitant]
     Indication: RHEUMATOID ARTHRITIS
     Route: 048
  6. VALORON 50 RET [Concomitant]
     Indication: PAIN
     Route: 048
  7. ACETYLCYSTEINE [Concomitant]
     Indication: DRUG USE FOR UNKNOWN INDICATION
     Route: 048
  8. KALINOR [Concomitant]
     Indication: HYPOKALAEMIA
  9. MONO EMBOLEX 3000 [Concomitant]
     Indication: ANTICOAGULANT THERAPY
     Route: 058
  10. MEPERIDINE HCL [Concomitant]
     Indication: PAIN
     Route: 058
  11. EMBOLEX [Concomitant]
     Indication: ANTICOAGULANT THERAPY
     Route: 058
  12. TARGIN 10/5 (OXYCODON/NALOXON) [Concomitant]
     Indication: COUGH
     Route: 048
  13. TARGIN 10/5 (OXYCODON/NALOXON) [Concomitant]
     Indication: PAIN
  14. METAMIZOLE [Concomitant]
     Indication: PAIN

REACTIONS (20)
  - ANAEMIA [None]
  - ARTERIAL THROMBOSIS LIMB [None]
  - BRONCHIOLITIS [None]
  - BRONCHITIS CHRONIC [None]
  - CACHEXIA [None]
  - CARDIAC FAILURE [None]
  - COLITIS [None]
  - DEPRESSION [None]
  - DIARRHOEA [None]
  - DRY MOUTH [None]
  - GANGRENE [None]
  - GENERAL PHYSICAL HEALTH DETERIORATION [None]
  - HYPOKALAEMIA [None]
  - INFARCTION [None]
  - PLEURISY [None]
  - PNEUMONIA [None]
  - PNEUMOTHORAX SPONTANEOUS TENSION [None]
  - PULMONARY EMBOLISM [None]
  - PULMONARY INFARCTION [None]
  - STOMATITIS [None]
